FAERS Safety Report 5240559-8 (Version None)
Quarter: 2007Q1

REPORT INFORMATION
  Report Type: 
  Country: None (occurrence: None)
  Receive Date: 20070219
  Receipt Date: 20070206
  Transmission Date: 20070707
  Serious: Yes (Congenital Anomaly)
  Sender: FDA-Public Use
  Company Number: DE-BRISTOL-MYERS SQUIBB COMPANY-13674171

PATIENT
  Age: 1 Day

DRUGS (2)
  1. SUSTIVA [Suspect]
     Route: 064
     Dates: start: 20060101, end: 20060701
  2. COMBIVIR [Concomitant]
     Route: 064
     Dates: start: 20060101, end: 20060701

REACTIONS (3)
  - CONGENITAL ANOMALY [None]
  - FOOT DEFORMITY [None]
  - PREGNANCY [None]
